FAERS Safety Report 23740187 (Version 1)
Quarter: 2024Q2

REPORT INFORMATION
  Report Type: Spontaneous
  Country: NO (occurrence: NO)
  Receive Date: 20240414
  Receipt Date: 20240414
  Transmission Date: 20240715
  Serious: Yes (Death, Other)
  Sender: FDA-Public Use
  Company Number: NO-SANDOZ-SDZ2024NO035949

PATIENT
  Sex: Female

DRUGS (1)
  1. DABIGATRAN ETEXILATE [Suspect]
     Active Substance: DABIGATRAN ETEXILATE
     Indication: Product used for unknown indication
     Route: 065

REACTIONS (2)
  - Cardiac fibrillation [Fatal]
  - Haemorrhage [Fatal]
